FAERS Safety Report 25367025 (Version 2)
Quarter: 2025Q2

REPORT INFORMATION
  Report Type: Spontaneous
  Country: GB (occurrence: GB)
  Receive Date: 20250528
  Receipt Date: 20250602
  Transmission Date: 20250717
  Serious: Yes (Other)
  Sender: ORGANON
  Company Number: None

PATIENT
  Age: 52 Year
  Sex: Female
  Weight: 57 kg

DRUGS (3)
  1. NASONEX [Suspect]
     Active Substance: MOMETASONE FUROATE
     Indication: Rhinitis
     Route: 045
     Dates: start: 20090925, end: 20250517
  2. IVABRADINE HYDROCHLORIDE [Concomitant]
     Active Substance: IVABRADINE HYDROCHLORIDE
  3. ESTRADIOL [Concomitant]
     Active Substance: ESTRADIOL

REACTIONS (5)
  - Arthralgia [Recovering/Resolving]
  - Myalgia [Recovering/Resolving]
  - Suicidal ideation [Recovering/Resolving]
  - Depression suicidal [Unknown]
  - Withdrawal syndrome [Unknown]

NARRATIVE: CASE EVENT DATE: 20250519
